FAERS Safety Report 8294695-2 (Version None)
Quarter: 2012Q2

REPORT INFORMATION
  Report Type: 
  Country: None (occurrence: None)
  Receive Date: 20120418
  Receipt Date: 20120411
  Transmission Date: 20120825
  Serious: Yes (Other)
  Sender: FDA-Public Use
  Company Number: US-CELGENEUS-163-20785-12041289

PATIENT
  Age: 57 Year
  Sex: Female
  Weight: 104.3 kg

DRUGS (2)
  1. THALOMID [Suspect]
     Indication: MULTIPLE MYELOMA
     Route: 048
     Dates: start: 20110501, end: 20120101
  2. DEXAMETHASONE [Concomitant]
     Indication: MULTIPLE MYELOMA
     Route: 065
     Dates: start: 20110501, end: 20120101

REACTIONS (5)
  - RENAL IMPAIRMENT [None]
  - DIABETES MELLITUS [None]
  - CARDIOVASCULAR DISORDER [None]
  - MULTIPLE MYELOMA [None]
  - GASTROINTESTINAL DISORDER [None]
